FAERS Safety Report 7524956-3 (Version None)
Quarter: 2011Q2

REPORT INFORMATION
  Report Type: 
  Country: None (occurrence: None)
  Receive Date: 20110606
  Receipt Date: 20110524
  Transmission Date: 20111010
  Serious: Yes (Hospitalization, Other)
  Sender: FDA-Public Use
  Company Number: CA-ELI_LILLY_AND_COMPANY-CA201105006755

PATIENT
  Sex: Male

DRUGS (6)
  1. ZYPREXA [Suspect]
     Dosage: 7.5 MG, EACH EVENING
  2. ZYPREXA [Suspect]
     Dosage: 10 MG, EACH EVENING
  3. ZYPREXA [Suspect]
     Indication: BIPOLAR DISORDER
     Dosage: 2.5 MG, EACH EVENING
  4. ZYPREXA [Suspect]
     Dosage: 5 MG, EACH EVENING
  5. CITALOPRAM [Concomitant]
  6. DIVALPROEX SODIUM [Concomitant]

REACTIONS (5)
  - HEPATIC STEATOSIS [None]
  - AUTOIMMUNE PANCREATITIS [None]
  - WEIGHT INCREASED [None]
  - PANCREATITIS [None]
  - ANAPHYLACTIC REACTION [None]
